FAERS Safety Report 8842861 (Version 9)
Quarter: 2014Q4

REPORT INFORMATION
  Report Type: Spontaneous
  Country: US (occurrence: US)
  Receive Date: 20121016
  Receipt Date: 20141219
  Transmission Date: 20150529
  Serious: Yes (Hospitalization, Other)
  Sender: FDA-Public Use
  Company Number: US-ACTELION-A-NJ2011-57491

PATIENT
  Age: 67 Year
  Sex: Male

DRUGS (14)
  1. VELETRI [Suspect]
     Active Substance: EPOPROSTENOL
     Dosage: 28.7 UNK, UNK
     Route: 042
  2. SPIRONOLACTONE. [Concomitant]
     Active Substance: SPIRONOLACTONE
  3. TYLENOL WITH CODEINE [Concomitant]
     Active Substance: ACETAMINOPHEN\CODEINE PHOSPHATE
  4. ALLEGRA [Concomitant]
     Active Substance: FEXOFENADINE HYDROCHLORIDE
  5. IMODIUM [Concomitant]
     Active Substance: LOPERAMIDE HYDROCHLORIDE
  6. SPIRIVA [Concomitant]
     Active Substance: TIOTROPIUM BROMIDE MONOHYDRATE
  7. VELETRI [Suspect]
     Active Substance: EPOPROSTENOL
     Indication: PULMONARY ARTERIAL HYPERTENSION
     Dosage: 20 NG/KG, PER MIN
     Route: 042
     Dates: start: 20110324
  8. FUROSEMIDE. [Concomitant]
     Active Substance: FUROSEMIDE
  9. PROTONIX [Concomitant]
     Active Substance: PANTOPRAZOLE SODIUM
  10. COUMADIN [Concomitant]
     Active Substance: WARFARIN SODIUM
  11. PREDNISONE. [Concomitant]
     Active Substance: PREDNISONE
  12. CALCIUM + VITAMIN D [Concomitant]
     Active Substance: CALCIUM\VITAMIN D
  13. FERROUS SULFATE [Concomitant]
     Active Substance: FERROUS SULFATE\FERROUS SULFATE, DRIED
  14. PROCHLORPERAZINE. [Concomitant]
     Active Substance: PROCHLORPERAZINE

REACTIONS (23)
  - Cardiac failure congestive [Unknown]
  - Hernia [Unknown]
  - Right ventricular failure [Unknown]
  - Pulmonary hypertension [Unknown]
  - Ascites [Unknown]
  - Nausea [Unknown]
  - Fluid retention [Unknown]
  - Treatment noncompliance [Unknown]
  - Depression [Unknown]
  - Headache [Unknown]
  - Pain in extremity [Unknown]
  - Cardiac pacemaker battery replacement [Unknown]
  - Vomiting [Unknown]
  - Gastrointestinal disorder [Unknown]
  - Hypertension [Unknown]
  - Inguinal hernia repair [Unknown]
  - Dyspnoea [Unknown]
  - Paracentesis [Unknown]
  - Renal failure [Unknown]
  - Hepatic congestion [Unknown]
  - Oedema [Unknown]
  - Oedema peripheral [Unknown]
  - Pain [Unknown]

NARRATIVE: CASE EVENT DATE: 20111115
